FAERS Safety Report 10601871 (Version 4)
Quarter: 2015Q1

REPORT INFORMATION
  Report Type: Spontaneous
  Country: US (occurrence: None)
  Receive Date: 20141120
  Receipt Date: 20150226
  Transmission Date: 20150720
  Serious: Yes (Hospitalization)
  Sender: FDA-Public Use
  Company Number: 2014TASUS000564

PATIENT
  Age: 71 Year
  Sex: Female
  Weight: 117.9 kg

DRUGS (13)
  1. LOPRESSOR [Concomitant]
     Active Substance: METOPROLOL TARTRATE
  2. CITALOPRAM (CITALOPRAM) [Concomitant]
     Active Substance: CITALOPRAM HYDROBROMIDE
  3. HETLIOZ [Suspect]
     Active Substance: TASIMELTEON
     Indication: CIRCADIAN RHYTHM SLEEP DISORDER
     Route: 048
     Dates: start: 201409, end: 20140928
  4. CYCLOBENZAPRINE (CYCLOBENZAPRINE) [Concomitant]
     Active Substance: CYCLOBENZAPRINE
  5. VICODIN  (HYDROCODONE BITARTRATE, PARACETAMIOL) [Concomitant]
  6. LYRICA [Concomitant]
     Active Substance: PREGABALIN
  7. LISINOPRIL (LISINOPRIL) [Concomitant]
     Active Substance: LISINOPRIL
  8. LANTUS [Concomitant]
     Active Substance: INSULIN GLARGINE
  9. CITALOPRAM (CITALOPRAM) [Concomitant]
     Active Substance: CITALOPRAM HYDROBROMIDE
  10. DICLOFENAC SODIUM ER (DICLOFENAC SODIUM) [Concomitant]
  11. HYDROCHOROTHIAZIDE (HYDROCHLOROTHIAZIDE) [Concomitant]
  12. AMLODIPINE (AMLODIPINE BESILATE) [Concomitant]
  13. DICLOFENAC SODIUM (DICLOFENAC SODIUM) [Concomitant]
     Active Substance: DICLOFENAC SODIUM

REACTIONS (4)
  - Foot fracture [None]
  - Abnormal dreams [None]
  - Nightmare [None]
  - Drug dose omission [None]

NARRATIVE: CASE EVENT DATE: 20140928
